FAERS Safety Report 4710996-6 (Version None)
Quarter: 2005Q3

REPORT INFORMATION
  Report Type: 
  Country: None (occurrence: None)
  Receive Date: 20050708
  Receipt Date: 20050627
  Transmission Date: 20060218
  Serious: Yes (Other)
  Sender: FDA-Public Use
  Company Number: PHBS2005JP09369

PATIENT
  Age: 20 Year
  Sex: Female

DRUGS (3)
  1. NEORAL [Suspect]
     Indication: SYSTEMIC LUPUS ERYTHEMATOSUS
     Dosage: SEE IMAGE
     Route: 048
     Dates: end: 20050101
  2. RIFAMPICIN [Suspect]
     Indication: TUBERCULOSIS
     Dosage: 450 MG/D, ORAL
     Dates: end: 20050101
  3. STEROIDS NOS (NO INGREDIENTS SUBSTANCES) [Suspect]

REACTIONS (3)
  - DRUG INTERACTION [None]
  - DRUG LEVEL DECREASED [None]
  - THROMBOCYTOPENIA [None]
